FAERS Safety Report 8519442-8 (Version None)
Quarter: 2012Q3

REPORT INFORMATION
  Report Type: 
  Country: None (occurrence: None)
  Receive Date: 20120718
  Receipt Date: 20120716
  Transmission Date: 20120928
  Serious: No
  Sender: FDA-Public Use
  Company Number: US-PFIZER INC-2012171336

PATIENT
  Sex: Male
  Weight: 63.946 kg

DRUGS (2)
  1. XANAX [Suspect]
     Indication: PANIC DISORDER
     Dosage: 1 MG, 4X/DAY
     Route: 048
     Dates: start: 19900101
  2. XANAX [Suspect]
     Indication: COLITIS

REACTIONS (6)
  - HEADACHE [None]
  - MALAISE [None]
  - SOMNOLENCE [None]
  - HANGOVER [None]
  - NERVOUSNESS [None]
  - THERAPEUTIC RESPONSE UNEXPECTED [None]
